FAERS Safety Report 6027332-8 (Version None)
Quarter: 2009Q1

REPORT INFORMATION
  Report Type: 
  Country: None (occurrence: None)
  Receive Date: 20090105
  Receipt Date: 20090105
  Transmission Date: 20090719
  Serious: Yes (Other)
  Sender: FDA-Public Use
  Company Number: B0548226A

PATIENT
  Age: 87 Year
  Sex: Female
  Weight: 33 kg

DRUGS (7)
  1. ARIXTRA [Suspect]
     Indication: THROMBOSIS PROPHYLAXIS
     Dosage: 2.5MG PER DAY
     Route: 058
     Dates: start: 20080123, end: 20080205
  2. INFREE [Concomitant]
     Indication: ANALGESIA
     Dosage: 400MG PER DAY
     Route: 048
     Dates: start: 20080110
  3. MUCOSTA [Concomitant]
     Dosage: 400MG PER DAY
     Route: 048
     Dates: start: 20080110
  4. CHINESE MEDICINE [Concomitant]
     Dosage: 45G PER DAY
     Route: 048
     Dates: start: 20080208
  5. AMLODIN [Concomitant]
     Indication: HYPERTENSION
     Dosage: 5MG PER DAY
     Route: 048
  6. TAKEPRON [Concomitant]
     Dosage: 15MG PER DAY
     Route: 048
  7. SELBEX [Concomitant]
     Dosage: 1.5G PER DAY
     Route: 048

REACTIONS (5)
  - BLOOD DISORDER [None]
  - POSTOPERATIVE WOUND COMPLICATION [None]
  - TRAUMATIC HAEMATOMA [None]
  - WOUND COMPLICATION [None]
  - WOUND HAEMORRHAGE [None]
